FAERS Safety Report 8052977-3 (Version None)
Quarter: 2012Q1

REPORT INFORMATION
  Report Type: 
  Country: None (occurrence: None)
  Receive Date: 20120118
  Receipt Date: 20120113
  Transmission Date: 20120608
  Serious: Yes (Hospitalization)
  Sender: FDA-Public Use
  Company Number: FR-JNJFOC-20120105062

PATIENT
  Sex: Male

DRUGS (10)
  1. MORPHINE SULFATE [Suspect]
     Indication: PRODUCT USED FOR UNKNOWN INDICATION
     Route: 048
  2. ASPEGIC 325 [Concomitant]
     Route: 065
  3. DILTIAZEM HCL [Concomitant]
     Route: 065
  4. TRANSIPEG [Concomitant]
     Route: 065
  5. ATORVASTATIN CALCIUM [Concomitant]
     Route: 065
  6. ALFUZOSIN HCL [Concomitant]
     Route: 065
  7. DURAGESIC-100 [Suspect]
     Indication: PAIN
     Route: 062
  8. LYRICA [Concomitant]
     Route: 065
  9. NEXIUM [Concomitant]
     Route: 065
  10. OXAZEPAM [Concomitant]
     Dosage: 2 DOSES ON THE EVENING
     Route: 065

REACTIONS (3)
  - URINARY RETENTION [None]
  - FALL [None]
  - MALAISE [None]
